FAERS Safety Report 23529074 (Version 1)
Quarter: 2024Q1

REPORT INFORMATION
  Report Type: Spontaneous
  Country: US (occurrence: US)
  Receive Date: 20240216
  Receipt Date: 20240216
  Transmission Date: 20240410
  Serious: No
  Sender: FDA-Public Use
  Company Number: US-ABBVIE-5639983

PATIENT
  Sex: Female

DRUGS (1)
  1. ARMOUR THYROID [Suspect]
     Active Substance: THYROID, PORCINE
     Indication: Hypothyroidism
     Dosage: ARMOUR THYROID 15 MG
     Route: 048
     Dates: start: 2020

REACTIONS (3)
  - Autoimmune thyroiditis [Unknown]
  - Thyroxine decreased [Unknown]
  - Graves^ disease [Unknown]

NARRATIVE: CASE EVENT DATE: 20200101
